FAERS Safety Report 25021569 (Version 3)
Quarter: 2025Q2

REPORT INFORMATION
  Report Type: Report from Study
  Country: JP (occurrence: JP)
  Receive Date: 20250228
  Receipt Date: 20250423
  Transmission Date: 20250717
  Serious: Yes (Death, Hospitalization)
  Sender: ROCHE
  Company Number: JP-CHUGAI-2024032515

PATIENT
  Age: 82 Year
  Sex: Male
  Weight: 56 kg

DRUGS (15)
  1. PIASKY [Suspect]
     Active Substance: CROVALIMAB-AKKZ
     Indication: Paroxysmal nocturnal haemoglobinuria
     Route: 042
     Dates: start: 20240912, end: 20240912
  2. PIASKY [Suspect]
     Active Substance: CROVALIMAB-AKKZ
     Route: 050
     Dates: start: 20240913, end: 20241010
  3. PIASKY [Suspect]
     Active Substance: CROVALIMAB-AKKZ
     Route: 050
     Dates: start: 20241010, end: 20241010
  4. GLIMEPIRIDE [Suspect]
     Active Substance: GLIMEPIRIDE
     Indication: Product used for unknown indication
     Route: 048
     Dates: end: 20241028
  5. JANUVIA [Suspect]
     Active Substance: SITAGLIPTIN PHOSPHATE
     Indication: Product used for unknown indication
     Route: 048
     Dates: end: 20241028
  6. LEVOFLOXACIN HEMIHYDRATE [Concomitant]
     Active Substance: LEVOFLOXACIN
     Route: 065
     Dates: end: 20240912
  7. CIPROFLOXACIN [Concomitant]
     Active Substance: CIPROFLOXACIN
     Indication: Infection prophylaxis
     Route: 065
  8. DEFERASIROX [Concomitant]
     Active Substance: DEFERASIROX
     Indication: Paroxysmal nocturnal haemoglobinuria
     Route: 065
  9. DEFERASIROX [Concomitant]
     Active Substance: DEFERASIROX
     Indication: Paroxysmal nocturnal haemoglobinuria
     Route: 065
  10. PREDONINE [Concomitant]
     Active Substance: PREDNISOLONE
     Indication: Product used for unknown indication
     Route: 065
  11. LANSOPRAZOLE [Concomitant]
     Active Substance: LANSOPRAZOLE
     Indication: Product used for unknown indication
     Route: 065
     Dates: end: 20241212
  12. BONALON [Concomitant]
     Active Substance: ALENDRONATE SODIUM
     Route: 048
  13. CALONAL [Concomitant]
     Active Substance: ACETAMINOPHEN
  14. LYRICA [Concomitant]
     Active Substance: PREGABALIN
     Route: 048
     Dates: end: 20241212
  15. VILDAGLIPTIN [Concomitant]
     Active Substance: VILDAGLIPTIN
     Route: 048
     Dates: start: 20241101, end: 20241212

REACTIONS (5)
  - Myelodysplastic syndrome [Fatal]
  - Pyrexia [Fatal]
  - Sepsis [Fatal]
  - Hypoglycaemia [Recovered/Resolved]
  - Pneumonia [Recovering/Resolving]

NARRATIVE: CASE EVENT DATE: 20240913
